FAERS Safety Report 5752925-2 (Version None)
Quarter: 2008Q2

REPORT INFORMATION
  Report Type: 
  Country: None (occurrence: None)
  Receive Date: 20080527
  Receipt Date: 20080508
  Transmission Date: 20081010
  Serious: Yes (Hospitalization)
  Sender: FDA-Public Use
  Company Number: 2008AL004357

PATIENT
  Age: 67 Year
  Sex: Male

DRUGS (9)
  1. DIGOXIN [Suspect]
     Dates: start: 19890101
  2. LASIX [Concomitant]
  3. COUMADIN [Concomitant]
  4. ZOCOR [Concomitant]
  5. NORVASC [Concomitant]
  6. INSULIN [Concomitant]
  7. FLOMAX [Concomitant]
  8. ATENOLOL [Concomitant]
  9. RYTHMOL [Concomitant]

REACTIONS (3)
  - CARDIOACTIVE DRUG LEVEL INCREASED [None]
  - DIZZINESS [None]
  - HEART RATE DECREASED [None]
